FAERS Safety Report 6882189-8 (Version None)
Quarter: 2010Q3

REPORT INFORMATION
  Report Type: 
  Country: None (occurrence: None)
  Receive Date: 20100729
  Receipt Date: 20100719
  Transmission Date: 20110219
  Serious: Yes (Hospitalization, Congenital Anomaly)
  Sender: FDA-Public Use
  Company Number: FI-JNJFOC-20100705469

PATIENT
  Sex: Male
  Weight: 3.44 kg

DRUGS (3)
  1. TOPAMAX [Suspect]
     Indication: DRUG EXPOSURE DURING PREGNANCY
     Dosage: 100+125 MG
     Route: 064
  2. TOPAMAX [Suspect]
     Dosage: 150+125 MG
     Route: 064
  3. FOLVITE [Suspect]
     Indication: DRUG EXPOSURE DURING PREGNANCY
     Dosage: STARTED ON GESTATIONAL WEEK 9+4 TO PREVENT FOLIC ACID DEFICIENCY
     Route: 064

REACTIONS (3)
  - CONGENITAL TRICUSPID VALVE STENOSIS [None]
  - HYPOGLYCAEMIA [None]
  - INFECTION [None]
